FAERS Safety Report 9675034 (Version 7)
Quarter: 2014Q3

REPORT INFORMATION
  Report Type: Spontaneous
  Country: US (occurrence: None)
  Receive Date: 20131105
  Receipt Date: 20140804
  Transmission Date: 20150326
  Serious: Yes (Hospitalization)
  Sender: FDA-Public Use
  Company Number: US-000821

PATIENT
  Sex: Male

DRUGS (11)
  1. FLAGYL [Concomitant]
     Active Substance: METRONIDAZOLE\METRONIDAZOLE HYDROCHLORIDE
  2. LASIX [Concomitant]
     Active Substance: FUROSEMIDE
  3. EXCEDRIN [Concomitant]
     Active Substance: ACETAMINOPHEN\ASPIRIN\CAFFEINE
  4. SOLUTIONS FOR PARENTERAL NUTRITION [Concomitant]
     Active Substance: AMINO ACIDS\DEXTROSE\ELECTROLYTES NOS
  5. WARFARIN [Concomitant]
     Active Substance: WARFARIN
  6. LEVODOPA [Concomitant]
     Active Substance: LEVODOPA
  7. LOSARTAN POTASSIUM. [Concomitant]
     Active Substance: LOSARTAN POTASSIUM
  8. PAROXETINE [Concomitant]
     Active Substance: PAROXETINE\PAROXETINE HYDROCHLORIDE
  9. GATTEX [Suspect]
     Active Substance: TEDUGLUTIDE\WATER
     Indication: SHORT-BOWEL SYNDROME
     Dosage: 0.3 ML QD, STREN/ VOLUM: 0.3 ML| FREQU: ONCE A DAY SUBCUTANEOUS
     Route: 058
     Dates: start: 201305, end: 20140227
  10. LOMOTIL [Concomitant]
     Active Substance: ATROPINE SULFATE\DIPHENOXYLATE HYDROCHLORIDE
  11. LOVENOX [Concomitant]
     Active Substance: ENOXAPARIN SODIUM

REACTIONS (16)
  - Obstruction gastric [None]
  - Diarrhoea [None]
  - Abdominal pain [None]
  - Gingivitis [None]
  - Eructation [None]
  - Joint swelling [None]
  - Blood sodium decreased [None]
  - Thrombosis [None]
  - Body temperature increased [None]
  - Hypoaesthesia oral [None]
  - Vomiting [None]
  - Nausea [None]
  - Tooth fracture [None]
  - Chills [None]
  - Dyspnoea [None]
  - Pain [None]

NARRATIVE: CASE EVENT DATE: 2013
